FAERS Safety Report 23757082 (Version 1)
Quarter: 2024Q2

REPORT INFORMATION
  Report Type: Spontaneous
  Country: US (occurrence: US)
  Receive Date: 20240418
  Receipt Date: 20240418
  Transmission Date: 20240716
  Serious: No
  Sender: FDA-Public Use
  Company Number: US-PFIZER INC-202400088051

PATIENT
  Age: 60 Year
  Sex: Female

DRUGS (3)
  1. INLYTA [Suspect]
     Active Substance: AXITINIB
     Dosage: TAKE 3 TABLETS TWICE DAILY
     Dates: start: 20230321
  2. INLYTA [Suspect]
     Active Substance: AXITINIB
     Dosage: 1 MG (2 TABLETS) TWICE A DAY.
  3. KEYTRUDA [Concomitant]
     Active Substance: PEMBROLIZUMAB
     Dosage: CHANGED IT TO EVERY 6 WEEKS

REACTIONS (4)
  - Blood pressure increased [Recovering/Resolving]
  - Feeling jittery [Recovering/Resolving]
  - Stomatitis [Recovered/Resolved]
  - Oral pain [Recovering/Resolving]

NARRATIVE: CASE EVENT DATE: 20231201
